FAERS Safety Report 24653063 (Version 1)
Quarter: 2024Q4

REPORT INFORMATION
  Report Type: Spontaneous
  Country: ZA (occurrence: ZA)
  Receive Date: 20241122
  Receipt Date: 20241122
  Transmission Date: 20250115
  Serious: Yes (Hospitalization, Other)
  Sender: PFIZER
  Company Number: ZA-PFIZER INC-PV202400150469

PATIENT
  Age: 72 Year
  Sex: Female

DRUGS (3)
  1. METHOTREXATE SODIUM [Suspect]
     Active Substance: METHOTREXATE SODIUM
     Indication: Psoriatic arthropathy
     Dosage: 15 MG, WEEKLY
     Dates: start: 202002
  2. LEFLUNOMIDE [Suspect]
     Active Substance: LEFLUNOMIDE
     Dosage: 10 MG, DAILY
     Dates: start: 201808
  3. STELARA [Concomitant]
     Active Substance: USTEKINUMAB
     Dosage: 45 MG, 12 WEEKLY
     Dates: start: 201903

REACTIONS (3)
  - Radiculopathy [Recovering/Resolving]
  - Hepatitis C virus test positive [Unknown]
  - White blood cell count increased [Unknown]

NARRATIVE: CASE EVENT DATE: 20200412
